FAERS Safety Report 9520475 (Version 1)
Quarter: 2013Q3

REPORT INFORMATION
  Report Type: Report from Study
  Country: US (occurrence: US)
  Receive Date: 20130913
  Receipt Date: 20130913
  Transmission Date: 20140515
  Serious: Yes (Other)
  Sender: FDA-Public Use
  Company Number: US-ROCHE-1271782

PATIENT
  Age: 47 Year
  Sex: Female

DRUGS (15)
  1. HERCEPTIN [Suspect]
     Indication: BREAST CANCER METASTATIC
     Dosage: 1L DOSE (HERCEPTIN): 10 MG/KG EVERY 3
     Route: 065
  2. PERJETA [Suspect]
     Indication: BREAST CANCER METASTATIC
     Dosage: 1L
     Route: 065
  3. XELODA [Suspect]
     Indication: BREAST CANCER METASTATIC
     Dosage: 1L
     Route: 065
  4. ADRIAMYCIN [Concomitant]
  5. CYTOXAN [Concomitant]
  6. TAXOTERE [Concomitant]
  7. TYKERB [Concomitant]
  8. NOLVADEX [Concomitant]
  9. GEMZAR [Concomitant]
  10. WELLCOVORIN [Concomitant]
  11. AFINITOR [Concomitant]
  12. RHEUMATREX [Concomitant]
  13. VELBAN [Concomitant]
  14. IXEMPRA [Concomitant]
  15. TREXALL [Concomitant]

REACTIONS (2)
  - Cardiotoxicity [Unknown]
  - Disease progression [Unknown]
